FAERS Safety Report 20982813 (Version 6)
Quarter: 2022Q3

REPORT INFORMATION
  Report Type: Report from Study
  Country: JP (occurrence: JP)
  Receive Date: 20220620
  Receipt Date: 20220705
  Transmission Date: 20221027
  Serious: Yes (Death, Life-Threatening, Hospitalization, Other)
  Sender: FDA-Public Use
  Company Number: JP-BRISTOL-MYERS SQUIBB COMPANY-2022-056679

PATIENT
  Age: 64 Year
  Sex: Male
  Weight: 68 kg

DRUGS (55)
  1. CISPLATIN [Suspect]
     Active Substance: CISPLATIN
     Indication: Non-small cell lung cancer
     Dosage: MOST RECENT DOSE ON 28-JAN-2022
     Route: 065
     Dates: start: 20211126, end: 20220128
  2. CISPLATIN [Suspect]
     Active Substance: CISPLATIN
  3. PEMETREXED DISODIUM [Suspect]
     Active Substance: PEMETREXED DISODIUM
     Indication: Non-small cell lung cancer
     Dosage: MOST RECENT DOSE ON 28-JAN-2022
     Route: 065
     Dates: start: 20211126, end: 20220128
  4. PEMETREXED DISODIUM [Suspect]
     Active Substance: PEMETREXED DISODIUM
  5. LOPERAMIDE HYDROCHLORIDE [Concomitant]
     Active Substance: LOPERAMIDE HYDROCHLORIDE
     Indication: Product used for unknown indication
     Dosage: ONGOING
     Route: 048
     Dates: start: 20220218
  6. LOPERAMIDE HYDROCHLORIDE [Concomitant]
     Active Substance: LOPERAMIDE HYDROCHLORIDE
  7. ACETAMINOPHEN [Concomitant]
     Active Substance: ACETAMINOPHEN
     Indication: Adverse event
     Dosage: UNK?ONGOING
     Route: 048
     Dates: start: 20220318
  8. ACETAMINOPHEN [Concomitant]
     Active Substance: ACETAMINOPHEN
     Indication: Prophylaxis
     Dosage: ONGOING
     Route: 048
     Dates: start: 20211203
  9. ESZOPICLONE [Concomitant]
     Active Substance: ESZOPICLONE
     Indication: Adverse event
     Dosage: UNK?ONGOING
     Route: 048
     Dates: start: 20220318
  10. ESZOPICLONE [Concomitant]
     Active Substance: ESZOPICLONE
     Indication: Insomnia
  11. ALLOPURINOL [Concomitant]
     Active Substance: ALLOPURINOL
     Indication: Product used for unknown indication
     Dosage: ONGOING
     Route: 048
     Dates: start: 20210721
  12. ALLOPURINOL [Concomitant]
     Active Substance: ALLOPURINOL
  13. LACOSAMIDE [Concomitant]
     Active Substance: LACOSAMIDE
     Indication: Encephalopathy
     Dosage: UNK?ONGOING
     Route: 042
     Dates: start: 20220404
  14. LACOSAMIDE [Concomitant]
     Active Substance: LACOSAMIDE
  15. LANSOPRAZOLE [Concomitant]
     Active Substance: LANSOPRAZOLE
     Indication: Nausea
     Dosage: ONGOING
     Route: 048
     Dates: start: 20211129
  16. LANSOPRAZOLE [Concomitant]
     Active Substance: LANSOPRAZOLE
     Indication: Gastritis
  17. CHLORPROMAZINE HYDROCHLORIDE [Concomitant]
     Active Substance: CHLORPROMAZINE HYDROCHLORIDE
     Indication: Product used for unknown indication
     Dosage: ONGOING
     Route: 048
     Dates: start: 20211129
  18. CHLORPROMAZINE HYDROCHLORIDE [Concomitant]
     Active Substance: CHLORPROMAZINE HYDROCHLORIDE
  19. METOCLOPRAMIDE HYDROCHLORIDE [Concomitant]
     Active Substance: METOCLOPRAMIDE HYDROCHLORIDE
     Indication: Product used for unknown indication
     Dosage: ONGOING
     Route: 048
     Dates: start: 20211203
  20. METOCLOPRAMIDE HYDROCHLORIDE [Concomitant]
     Active Substance: METOCLOPRAMIDE HYDROCHLORIDE
  21. NAPROXEN [Concomitant]
     Active Substance: NAPROXEN
     Indication: Product used for unknown indication
     Dosage: ONGOING
     Route: 048
     Dates: start: 20211217
  22. NAPROXEN [Concomitant]
     Active Substance: NAPROXEN
  23. TRANEXAMIC ACID [Concomitant]
     Active Substance: TRANEXAMIC ACID
     Indication: Product used for unknown indication
     Dosage: ONGOING
     Route: 048
     Dates: start: 20220107
  24. TRANEXAMIC ACID [Concomitant]
     Active Substance: TRANEXAMIC ACID
  25. AMLODIPINE BESYLATE [Concomitant]
     Active Substance: AMLODIPINE BESYLATE
     Indication: Product used for unknown indication
     Dosage: ONGOING
     Route: 048
     Dates: start: 20220107
  26. AMLODIPINE BESYLATE [Concomitant]
     Active Substance: AMLODIPINE BESYLATE
  27. DEXAMETHASONE SODIUM PHOSPHATE [Concomitant]
     Active Substance: DEXAMETHASONE SODIUM PHOSPHATE
     Indication: Prophylaxis
     Dosage: ONGOING
     Route: 042
     Dates: start: 20211126
  28. DEXAMETHASONE SODIUM PHOSPHATE [Concomitant]
     Active Substance: DEXAMETHASONE SODIUM PHOSPHATE
  29. PALONOSETRON HYDROCHLORIDE [Concomitant]
     Active Substance: PALONOSETRON HYDROCHLORIDE
     Indication: Prophylaxis
     Dosage: ONGOING
     Route: 042
     Dates: start: 20211126
  30. PALONOSETRON HYDROCHLORIDE [Concomitant]
     Active Substance: PALONOSETRON HYDROCHLORIDE
  31. MANNITOL [Concomitant]
     Active Substance: MANNITOL
     Indication: Prophylaxis
     Dosage: 1 DF= 300 UNIT NOS?ONGOING
     Route: 042
     Dates: start: 20211126
  32. MANNITOL [Concomitant]
     Active Substance: MANNITOL
  33. SOLDEM 3AG [Concomitant]
     Indication: Product used for unknown indication
     Dosage: 1 DF= 500 UNIT NOS?ONGOING
     Route: 042
     Dates: start: 20220221
  34. SOLDEM 3AG [Concomitant]
  35. METRONIDAZOLE [Concomitant]
     Active Substance: METRONIDAZOLE
     Indication: Product used for unknown indication
     Dosage: ONGOING
     Route: 048
     Dates: start: 20220305
  36. METRONIDAZOLE [Concomitant]
     Active Substance: METRONIDAZOLE
  37. PREDNISOLONE SODIUM SUCCINATE [Concomitant]
     Active Substance: PREDNISOLONE SODIUM SUCCINATE
     Indication: Colitis
     Route: 048
     Dates: start: 20220524, end: 20220530
  38. PREDNISOLONE SODIUM SUCCINATE [Concomitant]
     Active Substance: PREDNISOLONE SODIUM SUCCINATE
     Indication: Encephalopathy
     Route: 048
     Dates: start: 20220531, end: 20220606
  39. PREDNISOLONE SODIUM SUCCINATE [Concomitant]
     Active Substance: PREDNISOLONE SODIUM SUCCINATE
     Route: 048
     Dates: start: 20220607, end: 20220609
  40. MAGNESIUM OXIDE [Concomitant]
     Active Substance: MAGNESIUM OXIDE
     Indication: Product used for unknown indication
     Dosage: ONGOING
     Route: 048
     Dates: start: 20211127
  41. MAGNESIUM OXIDE [Concomitant]
     Active Substance: MAGNESIUM OXIDE
  42. SENNOSIDES A AND B [Concomitant]
     Active Substance: SENNOSIDES A AND B
     Indication: Product used for unknown indication
     Dosage: ONGOING
     Route: 048
     Dates: start: 20211127
  43. MIYA-BM [Concomitant]
     Active Substance: CLOSTRIDIUM BUTYRICUM SPORES STRAIN M-55
     Indication: Product used for unknown indication
     Dosage: 1 DF= 3 UNIT NOS?ONGOING
     Route: 048
     Dates: start: 20211203
  44. OXYCODONE HYDROCHLORIDE TRIHYDRATE [Concomitant]
     Active Substance: OXYCODONE HYDROCHLORIDE TRIHYDRATE
     Indication: Product used for unknown indication
     Dosage: ONGOING
     Route: 048
     Dates: start: 20211217
  45. CARBAZOCHROME SODIUM SULFONATE TRIHYDRATE [Concomitant]
     Indication: Product used for unknown indication
     Dosage: ONGOING
     Route: 048
     Dates: start: 20220107
  46. MAGNESIUM SULFATE DIHYDRATE [Concomitant]
     Indication: Prophylaxis
     Dosage: 1 DF= 8 UNIT NOS?ONGOING
     Route: 042
     Dates: start: 20211126
  47. CHLORPHENAMINE MALEATE;DIHYDROCODEINE PHOSPHATE;METHYLEPHEDRINE HYDROC [Concomitant]
     Indication: Product used for unknown indication
     Dosage: 1 DF=9 UNIT NOS?ONGOING
     Route: 048
     Dates: start: 20211101
  48. BUTYRIC ACID [Concomitant]
     Active Substance: BUTYRIC ACID
     Indication: Product used for unknown indication
     Dosage: BUTYRIC ACID BACTERIA?1 DF= 1 UNIT NOS?ONGOING
     Route: 048
     Dates: start: 20211203
  49. BIFIDOBACTERIUM NOS [Concomitant]
     Indication: Product used for unknown indication
     Dosage: BIFIDOBACTRIUM COMBINED DRUG?1 DF= 1 UNIT NOS?ONGOING
     Route: 048
     Dates: start: 20220222
  50. SULFAMETHIZOLE\TRIMETHOPRIM [Concomitant]
     Active Substance: SULFAMETHIZOLE\TRIMETHOPRIM
     Indication: Product used for unknown indication
     Dosage: 1 DF= 1 UNIT NOS?ONGOING
     Route: 048
     Dates: start: 20220303
  51. FLUTICASONE PROPIONATE\FORMOTEROL FUMARATE [Concomitant]
     Active Substance: FLUTICASONE PROPIONATE\FORMOTEROL FUMARATE
     Indication: Product used for unknown indication
     Dosage: ONGOING
     Route: 055
  52. PIPERACILLIN SODIUM\TAZOBACTAM SODIUM [Concomitant]
     Active Substance: PIPERACILLIN SODIUM\TAZOBACTAM SODIUM
     Indication: Pneumonia
     Dosage: PIPERACILLIN/TAZOBACTAM HYDRATE
     Route: 043
     Dates: start: 20220608, end: 20220609
  53. OMEPLAZOLE SODIUM [Concomitant]
     Indication: Prophylaxis
     Dosage: UNK?ONGOING
     Route: 042
     Dates: start: 20220327
  54. HEPARINOID [Concomitant]
     Indication: Product used for unknown indication
     Dosage: HEPARINOID 0.3%?UNK?ONGOING
     Route: 062
     Dates: start: 20220315
  55. AMPHOTERICIN B [Concomitant]
     Active Substance: AMPHOTERICIN B
     Indication: Oral candidiasis
     Dosage: UNK?ONGOING
     Route: 048
     Dates: start: 20220316

REACTIONS (2)
  - Pneumonitis [Fatal]
  - Pneumonia [Not Recovered/Not Resolved]

NARRATIVE: CASE EVENT DATE: 20220609
